FAERS Safety Report 6406906-6 (Version None)
Quarter: 2009Q4

REPORT INFORMATION
  Report Type: 
  Country: None (occurrence: None)
  Receive Date: 20091020
  Receipt Date: 20091012
  Transmission Date: 20100525
  Serious: Yes (Other)
  Sender: FDA-Public Use
  Company Number: US-ASTRAZENECA-2009SE19674

PATIENT
  Age: 408 Month
  Sex: Female
  Weight: 61.2 kg

DRUGS (4)
  1. SEROQUEL [Suspect]
     Route: 048
  2. ABILIFY [Suspect]
  3. EFFEXOR [Concomitant]
  4. AMBIEN [Concomitant]
     Indication: INSOMNIA

REACTIONS (5)
  - APATHY [None]
  - CRYING [None]
  - DRUG DOSE OMISSION [None]
  - FEELING OF DESPAIR [None]
  - SUICIDAL IDEATION [None]
